FAERS Safety Report 8564562-5 (Version None)
Quarter: 2012Q3

REPORT INFORMATION
  Report Type: 
  Country: None (occurrence: None)
  Receive Date: 20120803
  Receipt Date: 20120730
  Transmission Date: 20120928
  Serious: Yes (Other)
  Sender: FDA-Public Use
  Company Number: US-JNJFOC-20120600840

PATIENT
  Sex: Female
  Weight: 77.57 kg

DRUGS (13)
  1. RISPERIDONE [Suspect]
     Route: 048
     Dates: start: 20070101
  2. RISPERIDONE [Suspect]
     Indication: BIPOLAR DISORDER
     Dosage: 3MG IN MORNING 3MG IN AFTERNOON AND 3MG AT NIGHT
     Route: 048
     Dates: start: 19940101, end: 20060101
  3. RISPERIDONE [Suspect]
     Dosage: 3MG IN MORNING,1MG IN AFTERNOON,3MG AT NIGHT
     Route: 048
  4. RISPERIDONE [Suspect]
     Route: 048
     Dates: start: 20070101
  5. RISPERIDONE [Suspect]
     Route: 048
     Dates: start: 20070101
  6. RISPERIDONE [Suspect]
     Route: 048
     Dates: start: 20060101, end: 20070101
  7. RISPERIDONE [Suspect]
     Route: 048
     Dates: start: 20060101, end: 20070101
  8. INVEGA SUSTENNA [Suspect]
     Indication: PRODUCT USED FOR UNKNOWN INDICATION
     Route: 030
  9. RISPERIDONE [Suspect]
     Indication: AFFECTIVE DISORDER
     Dosage: 3MG IN MORNING,1MG IN AFTERNOON,3MG AT NIGHT
     Route: 048
  10. RISPERIDONE [Suspect]
     Dosage: 3MG IN MORNING 3MG IN AFTERNOON AND 3MG AT NIGHT
     Route: 048
     Dates: start: 19940101, end: 20060101
  11. RISPERIDONE [Suspect]
     Indication: SCHIZOPHRENIA
     Dosage: 3MG IN MORNING 3MG IN AFTERNOON AND 3MG AT NIGHT
     Route: 048
     Dates: start: 19940101, end: 20060101
  12. RISPERIDONE [Suspect]
     Dosage: 3MG IN MORNING,1MG IN AFTERNOON,3MG AT NIGHT
     Route: 048
  13. RISPERIDONE [Suspect]
     Route: 048
     Dates: start: 20060101, end: 20070101

REACTIONS (6)
  - DRUG DOSE OMISSION [None]
  - CONTUSION [None]
  - INAPPROPRIATE SCHEDULE OF DRUG ADMINISTRATION [None]
  - OVERDOSE [None]
  - SEXUAL DYSFUNCTION [None]
  - DYSPHAGIA [None]
